FAERS Safety Report 17535145 (Version 1)
Quarter: 2020Q1

REPORT INFORMATION
  Report Type: Spontaneous
  Country: US (occurrence: US)
  Receive Date: 20200312
  Receipt Date: 20200312
  Transmission Date: 20200409
  Serious: No
  Sender: FDA-Public Use
  Company Number: NVSC2020US071389

PATIENT
  Sex: Female

DRUGS (1)
  1. PROMACTA [Suspect]
     Active Substance: ELTROMBOPAG OLAMINE
     Indication: POST CONCUSSION SYNDROME
     Dosage: 60 MG, QD (DAILY).
     Route: 048
     Dates: start: 20191102

REACTIONS (1)
  - Headache [Unknown]
